FAERS Safety Report 18616268 (Version 1)
Quarter: 2020Q4

REPORT INFORMATION
  Report Type: Report from Study
  Country: PT (occurrence: PT)
  Receive Date: 20201214
  Receipt Date: 20201214
  Transmission Date: 20210114
  Serious: Yes (Disabling)
  Sender: FDA-Public Use
  Company Number: PT-BIOGEN-2019BI00765417

PATIENT
  Sex: Female

DRUGS (7)
  1. AVONEX PEN [Suspect]
     Active Substance: INTERFERON BETA-1A
  2. AVONEX PEN [Suspect]
     Active Substance: INTERFERON BETA-1A
  3. LIORESAL [Concomitant]
     Active Substance: BACLOFEN
     Route: 065
  4. AVONEX PEN [Suspect]
     Active Substance: INTERFERON BETA-1A
  5. DIPLEXIL [Concomitant]
     Active Substance: VALPROATE SODIUM
     Route: 065
  6. AVONEX PEN [Suspect]
     Active Substance: INTERFERON BETA-1A
     Indication: RELAPSING-REMITTING MULTIPLE SCLEROSIS
     Route: 030
     Dates: start: 20160414
  7. MYSOLINE [Concomitant]
     Active Substance: PRIMIDONE
     Route: 065

REACTIONS (8)
  - Impaired self-care [Not Recovered/Not Resolved]
  - Facial pain [Not Recovered/Not Resolved]
  - Fatigue [Not Recovered/Not Resolved]
  - Immobile [Not Recovered/Not Resolved]
  - Apathy [Not Recovered/Not Resolved]
  - Confusional state [Not Recovered/Not Resolved]
  - Communication disorder [Not Recovered/Not Resolved]
  - Muscular weakness [Not Recovered/Not Resolved]
